FAERS Safety Report 13425385 (Version 1)
Quarter: 2017Q2

REPORT INFORMATION
  Report Type: Spontaneous
  Country: US (occurrence: US)
  Receive Date: 20170411
  Receipt Date: 20170411
  Transmission Date: 20170830
  Serious: Yes (Other)
  Sender: FDA-Public Use
  Company Number: US-CIPLA LTD.-2016US06892

PATIENT

DRUGS (1)
  1. FOSINOPRIL SODIUM. [Suspect]
     Active Substance: FOSINOPRIL SODIUM
     Dosage: 20 MG, UNK
     Route: 048

REACTIONS (4)
  - Swollen tongue [Unknown]
  - Pharyngeal oedema [Unknown]
  - Mouth swelling [Unknown]
  - Lip swelling [Unknown]
